FAERS Safety Report 8446896-8 (Version None)
Quarter: 2012Q2

REPORT INFORMATION
  Report Type: 
  Country: None (occurrence: None)
  Receive Date: 20120612
  Receipt Date: 20120612
  Transmission Date: 20120825
  Serious: Yes (Hospitalization)
  Sender: FDA-Public Use
  Company Number: None

PATIENT
  Sex: Female
  Weight: 73 kg

DRUGS (6)
  1. VINCRISTINE SULFATE [Suspect]
     Dosage: 1.5 MG
  2. CYTARABINE [Suspect]
     Dosage: 70 MG
  3. METHOTREXATE [Suspect]
     Dosage: 15 MG
  4. ALLOPURINOL [Suspect]
     Dosage: 300 MG
  5. DAUNORUBICIN HCL [Suspect]
     Dosage: 45.5 MG
  6. PEG-L-ASPARAGINASE (K-H) [Suspect]
     Dosage: 2500 IU

REACTIONS (14)
  - EJECTION FRACTION DECREASED [None]
  - MUSCULAR WEAKNESS [None]
  - CULTURE URINE POSITIVE [None]
  - DYSPNOEA [None]
  - MYOSITIS [None]
  - KLEBSIELLA TEST POSITIVE [None]
  - TACHYCARDIA [None]
  - ASTHENIA [None]
  - MOTOR NEURONE DISEASE [None]
  - ESCHERICHIA TEST POSITIVE [None]
  - CHEST DISCOMFORT [None]
  - INFLUENZA [None]
  - MYALGIA [None]
  - GRIP STRENGTH DECREASED [None]
